FAERS Safety Report 9513000 (Version 3)
Quarter: 2013Q3

REPORT INFORMATION
  Report Type: Spontaneous
  Country: US (occurrence: US)
  Receive Date: 20130910
  Receipt Date: 20130923
  Transmission Date: 20140515
  Serious: Yes (Other)
  Sender: FDA-Public Use
  Company Number: US-PFIZER INC-2013258592

PATIENT
  Age: 64 Year
  Sex: Female
  Weight: 111.57 kg

DRUGS (14)
  1. LYRICA [Suspect]
     Indication: FIBROMYALGIA
     Dosage: 75 MG, 2X/DAY
     Route: 048
     Dates: start: 2007
  2. LYRICA [Suspect]
     Indication: PAIN IN EXTREMITY
     Dosage: 75 MG, UNK
     Route: 048
     Dates: start: 2013, end: 2013
  3. LYRICA [Suspect]
     Indication: PAIN
     Dosage: 75 MG, 1X/DAY
     Route: 048
     Dates: start: 2013, end: 2013
  4. LYRICA [Suspect]
     Dosage: 75 MG, ALTERNATE DAY
     Route: 048
     Dates: start: 2013, end: 2013
  5. LYRICA [Suspect]
     Dosage: 75 MG, EVERY TWO ALTERNATE DAYS FOR A WEEK
     Route: 048
     Dates: start: 2013, end: 2013
  6. LYRICA [Suspect]
     Dosage: 75 MG, 1X/DAY
     Route: 048
     Dates: start: 2013, end: 2013
  7. LYRICA [Suspect]
     Dosage: 75 MG, ALTERNATE DAY
     Route: 048
     Dates: start: 2013, end: 2013
  8. LYRICA [Suspect]
     Dosage: 75 MG, EVERY TWO ALTERNATE DAYS FOR A WEEK
     Route: 048
     Dates: start: 2013, end: 2013
  9. LYRICA [Suspect]
     Dosage: 75 MG, 1X/DAY
     Route: 048
     Dates: start: 2013, end: 2013
  10. LYRICA [Suspect]
     Dosage: 75 MG, 2X/DAY
     Route: 048
     Dates: start: 2013, end: 2013
  11. LYRICA [Suspect]
     Dosage: 75 MG, 1X/DAY
     Route: 048
     Dates: start: 2013, end: 2013
  12. LYRICA [Suspect]
     Dosage: 75 MG, ALTERNATE DAY
     Route: 048
     Dates: start: 2013, end: 2013
  13. LYRICA [Suspect]
     Dosage: 75 MG, 2X/DAY
     Route: 048
     Dates: start: 2013
  14. HYDROCHLOROTHIAZIDE [Concomitant]
     Indication: BLOOD PRESSURE ABNORMAL
     Dosage: 12.5 MG, UNK

REACTIONS (10)
  - Off label use [Unknown]
  - Osteoarthritis [Unknown]
  - Hypertension [Unknown]
  - Body height decreased [Unknown]
  - Drug ineffective for unapproved indication [Unknown]
  - Increased appetite [Unknown]
  - Skin disorder [Recovered/Resolved]
  - Burning sensation [Recovered/Resolved]
  - Skin burning sensation [Unknown]
  - Feeling abnormal [Unknown]
